FAERS Safety Report 18560210 (Version 2)
Quarter: 2021Q1

REPORT INFORMATION
  Report Type: Spontaneous
  Country: US (occurrence: US)
  Receive Date: 20201130
  Receipt Date: 20210201
  Transmission Date: 20210419
  Serious: No
  Sender: FDA-Public Use
  Company Number: US-SA-2020SA328176

PATIENT
  Sex: Male
  Weight: 61.22 kg

DRUGS (16)
  1. DUPIXENT [Suspect]
     Active Substance: DUPILUMAB
     Indication: RHINITIS ALLERGIC
     Dosage: 300 MG, QOW
     Route: 058
     Dates: start: 2020
  2. DUPIXENT [Suspect]
     Active Substance: DUPILUMAB
     Indication: ECZEMA
  3. DUPIXENT [Suspect]
     Active Substance: DUPILUMAB
     Indication: DERMATITIS ATOPIC
  4. DUPIXENT [Suspect]
     Active Substance: DUPILUMAB
     Indication: ECZEMA
  5. DUPIXENT [Suspect]
     Active Substance: DUPILUMAB
     Indication: DERMATITIS ATOPIC
  6. TRIAMCINOLONE ACETONIDE. [Concomitant]
     Active Substance: TRIAMCINOLONE ACETONIDE
  7. BENADRYL [Concomitant]
     Active Substance: DIPHENHYDRAMINE HYDROCHLORIDE
  8. CLARITIN?D 12 HOUR [Concomitant]
     Active Substance: LORATADINE\PSEUDOEPHEDRINE SULFATE
  9. DUPIXENT [Suspect]
     Active Substance: DUPILUMAB
     Indication: ECZEMA
  10. ZYRTEC?D [Concomitant]
     Active Substance: CETIRIZINE HYDROCHLORIDE\PSEUDOEPHEDRINE HYDROCHLORIDE
  11. DUPIXENT [Suspect]
     Active Substance: DUPILUMAB
     Indication: RHINITIS ALLERGIC
     Dosage: UNK, UNK
     Dates: start: 2019
  12. DUPIXENT [Suspect]
     Active Substance: DUPILUMAB
     Indication: RHINITIS ALLERGIC
     Dosage: UNK, UNK
     Dates: start: 2019
  13. DUPIXENT [Suspect]
     Active Substance: DUPILUMAB
     Indication: DERMATITIS ATOPIC
  14. DUPIXENT [Suspect]
     Active Substance: DUPILUMAB
     Indication: ECZEMA
  15. DUPIXENT [Suspect]
     Active Substance: DUPILUMAB
     Indication: RHINITIS ALLERGIC
     Dosage: 300 MG, QOW
     Route: 058
     Dates: start: 2020
  16. DUPIXENT [Suspect]
     Active Substance: DUPILUMAB
     Indication: DERMATITIS ATOPIC

REACTIONS (2)
  - Injection site pain [Unknown]
  - Product use in unapproved indication [Unknown]

NARRATIVE: CASE EVENT DATE: 2019
